FAERS Safety Report 5835003-3 (Version None)
Quarter: 2008Q3

REPORT INFORMATION
  Report Type: 
  Country: None (occurrence: None)
  Receive Date: 20080804
  Receipt Date: 20080718
  Transmission Date: 20090109
  Serious: Yes (Disabling)
  Sender: FDA-Public Use
  Company Number: DSA_32179_2008

PATIENT
  Sex: Female

DRUGS (14)
  1. LORAZEPAM [Suspect]
     Indication: DRUG USE FOR UNKNOWN INDICATION
     Dosage: (DF ORAL), (DF ORAL)
     Route: 048
     Dates: end: 20080501
  2. LORAZEPAM [Suspect]
     Indication: DRUG USE FOR UNKNOWN INDICATION
     Dosage: (DF ORAL), (DF ORAL)
     Route: 048
     Dates: start: 20080501
  3. EFFEXOR [Suspect]
     Indication: DRUG USE FOR UNKNOWN INDICATION
     Dosage: (DF ORAL)
     Route: 048
  4. DEPAKENE [Suspect]
     Indication: ACUTE MYELOID LEUKAEMIA
     Dosage: (1000 MG BID ORAL), (500 MG BID ORAL)
     Route: 048
     Dates: start: 20080506, end: 20080512
  5. DEPAKENE [Suspect]
     Indication: ACUTE MYELOID LEUKAEMIA
     Dosage: (1000 MG BID ORAL), (500 MG BID ORAL)
     Route: 048
     Dates: start: 20080610
  6. ACETAMINOPHEN W/ PROPOXYPHENE HCL [Suspect]
     Indication: DRUG USE FOR UNKNOWN INDICATION
     Dosage: (DF ORAL)
     Route: 048
  7. VASTAREL (TRIMETAZIDINE HYDROCHLORIDE) [Suspect]
     Indication: DRUG USE FOR UNKNOWN INDICATION
     Dosage: (DF ORAL)
     Route: 048
  8. VESANOID [Suspect]
     Indication: ACUTE MYELOID LEUKAEMIA
     Dosage: (45 MG/M2 QD ORAL), (45 MG/M2 QD ORAL)
     Route: 048
     Dates: start: 20080513, end: 20080602
  9. VESANOID [Suspect]
     Indication: ACUTE MYELOID LEUKAEMIA
     Dosage: (45 MG/M2 QD ORAL), (45 MG/M2 QD ORAL)
     Route: 048
     Dates: start: 20080601
  10. VIDAZA [Suspect]
     Indication: ACUTE MYELOID LEUKAEMIA
     Dosage: (130 MG QD SUBCUTANEOUS), (130 MG QD SUBCUTANEOUS)
     Route: 058
     Dates: start: 20080506, end: 20080512
  11. VIDAZA [Suspect]
     Indication: ACUTE MYELOID LEUKAEMIA
     Dosage: (130 MG QD SUBCUTANEOUS), (130 MG QD SUBCUTANEOUS)
     Route: 058
     Dates: start: 20080610
  12. LEVOTHYROXINE SODIUM [Concomitant]
  13. FLUDEX [Concomitant]
  14. FLECTOR [Concomitant]

REACTIONS (4)
  - ENCEPHALOPATHY [None]
  - PARKINSONIAN GAIT [None]
  - PSYCHOMOTOR RETARDATION [None]
  - TREMOR [None]
